FAERS Safety Report 10099022 (Version 1)
Quarter: 2014Q2

REPORT INFORMATION
  Report Type: Spontaneous
  Country: US (occurrence: None)
  Receive Date: 20140422
  Receipt Date: 20140422
  Transmission Date: 20141212
  Serious: Yes (Other)
  Sender: FDA-Public Use
  Company Number: None

PATIENT
  Age: 51 Year
  Sex: Female
  Weight: 64.41 kg

DRUGS (2)
  1. SERTRALINE HCL [Suspect]
     Indication: DEPRESSION
     Dosage: 1 1/2 PILLS ONCE DAILY TAKEN BY MOUTH
     Route: 048
     Dates: start: 20120401, end: 20140411
  2. SERTRALINE HCL [Suspect]
     Indication: OBSESSIVE-COMPULSIVE DISORDER
     Dosage: 1 1/2 PILLS ONCE DAILY TAKEN BY MOUTH
     Route: 048
     Dates: start: 20120401, end: 20140411

REACTIONS (3)
  - Vertigo [None]
  - Withdrawal syndrome [None]
  - Impaired driving ability [None]
